FAERS Safety Report 17084697 (Version 2)
Quarter: 2020Q1

REPORT INFORMATION
  Report Type: Spontaneous
  Country: DK (occurrence: DK)
  Receive Date: 20191127
  Receipt Date: 20200113
  Transmission Date: 20200409
  Serious: Yes (Hospitalization, Other)
  Sender: FDA-Public Use
  Company Number: DK-AMGEN-DNKSP2019194925

PATIENT
  Age: 68 Year
  Sex: Male

DRUGS (1)
  1. PROLIA [Suspect]
     Active Substance: DENOSUMAB
     Indication: PRODUCT USED FOR UNKNOWN INDICATION
     Dosage: UNK
     Route: 065

REACTIONS (7)
  - Periprosthetic metallosis [Unknown]
  - Wound secretion [Unknown]
  - Tibia fracture [Unknown]
  - Pyrexia [Unknown]
  - C-reactive protein abnormal [Unknown]
  - Osteolysis [Unknown]
  - Staphylococcus test positive [Unknown]
